FAERS Safety Report 4544033-3 (Version None)
Quarter: 2005Q1

REPORT INFORMATION
  Report Type: 
  Country: None (occurrence: None)
  Receive Date: 20050104
  Receipt Date: 20041221
  Transmission Date: 20050727
  Serious: Yes (Other)
  Sender: FDA-Public Use
  Company Number: JP-MERCK-0412USA02983

PATIENT
  Age: 79 Year
  Sex: Male

DRUGS (15)
  1. ACTOS [Suspect]
     Indication: DIABETES MELLITUS
     Route: 048
     Dates: start: 20040401, end: 20041214
  2. COZAAR [Suspect]
     Indication: HYPERTENSION
     Route: 048
     Dates: start: 20041208, end: 20041214
  3. COZAAR [Suspect]
     Indication: DIASTOLIC DYSFUNCTION
     Route: 048
     Dates: start: 20041208, end: 20041214
  4. DIART [Concomitant]
     Route: 048
     Dates: start: 20041208, end: 20041214
  5. DIART [Concomitant]
     Route: 048
     Dates: start: 20041201
  6. ALDACTONE [Concomitant]
     Route: 048
     Dates: start: 20041208, end: 20041214
  7. ALDACTONE [Concomitant]
     Route: 048
     Dates: start: 20041201
  8. MAGNESIUM OXIDE [Concomitant]
     Indication: CONSTIPATION
     Route: 048
     Dates: start: 20021201
  9. ADALAT [Concomitant]
     Indication: HYPERTENSION
     Route: 048
     Dates: start: 20021201
  10. UNIPHYL [Concomitant]
     Indication: ASTHMA
     Route: 048
     Dates: start: 20021201
  11. THEO-DUR [Concomitant]
     Indication: ASTHMA
     Route: 048
     Dates: start: 20021201
  12. PANTOSIN [Concomitant]
     Indication: CONSTIPATION
     Route: 048
     Dates: start: 20021201
  13. ZYRTEC [Concomitant]
     Route: 048
     Dates: start: 20021201
  14. RIZE [Concomitant]
     Indication: INSOMNIA
     Route: 048
     Dates: start: 20021201
  15. GLYBURIDE [Concomitant]
     Route: 048
     Dates: start: 20021201

REACTIONS (6)
  - ACIDOSIS [None]
  - BLOOD CREATININE INCREASED [None]
  - BLOOD PRESSURE DECREASED [None]
  - BLOOD UREA INCREASED [None]
  - PYREXIA [None]
  - RHABDOMYOLYSIS [None]
